FAERS Safety Report 5236379-0 (Version None)
Quarter: 2007Q1

REPORT INFORMATION
  Report Type: 
  Country: None (occurrence: None)
  Receive Date: 20070208
  Receipt Date: 20061019
  Transmission Date: 20070707
  Serious: Yes (Hospitalization)
  Sender: FDA-Public Use
  Company Number: 2007SP001589

PATIENT
  Age: 59 Year
  Sex: Male

DRUGS (10)
  1. RINDERON (BETAMETHASONE) (BETAMETHASONE) [Suspect]
     Indication: BRAIN OEDEMA
     Dosage: SEE IMAGE
     Dates: start: 20060912, end: 20060919
  2. RINDERON (BETAMETHASONE) (BETAMETHASONE) [Suspect]
     Indication: BRAIN OEDEMA
     Dosage: SEE IMAGE
     Dates: start: 20060920, end: 20061013
  3. RINDERON (BETAMETHASONE) (BETAMETHASONE) [Suspect]
     Indication: BRAIN OEDEMA
     Dosage: SEE IMAGE
     Dates: start: 20061014
  4. IOPAMIDOL [Suspect]
     Indication: LUNG NEOPLASM MALIGNANT
     Dosage: 100 ML;QD; IV
     Route: 042
     Dates: start: 20060911
  5. TS-1 (TS 1) [Suspect]
     Indication: LUNG NEOPLASM MALIGNANT
     Dosage: 100 MG; QD; PO
     Route: 048
     Dates: start: 20060927, end: 20060929
  6. RABEPRAZOLE SODIUM [Suspect]
     Indication: GASTRIC ULCER
     Dosage: 10 MG QD; PO
     Route: 048
     Dates: start: 20060914, end: 20061016
  7. MUCODYNE (CARBOCISTEINE) [Suspect]
     Indication: LUNG NEOPLASM MALIGNANT
     Dosage: 1500 MG;QD;PO
     Route: 048
     Dates: start: 20060918, end: 20061016
  8. NEUROTROPIN (ORGAN LYSTATE, STANDARDIZED) [Suspect]
     Indication: BRAIN OEDEMA
     Dosage: 16 IU; PO
     Route: 048
     Dates: start: 20060801, end: 20061016
  9. TERNELIN (TIZANIDINE HDYROCHLORIDE) [Suspect]
     Indication: BRAIN OEDEMA
     Dosage: 3 MG; QD; PO
     Route: 048
     Dates: start: 20060801, end: 20061016
  10. CODEINE PHOSPHATE (NO PREF NAME) [Suspect]
     Indication: LUNG NEOPLASM MALIGNANT
     Dosage: 60 MG; QD; PO
     Route: 048
     Dates: start: 20060914, end: 20061016

REACTIONS (3)
  - BLOOD ALKALINE PHOSPHATASE INCREASED [None]
  - GAMMA-GLUTAMYLTRANSFERASE INCREASED [None]
  - LIVER DISORDER [None]
